FAERS Safety Report 10619942 (Version 1)
Quarter: 2014Q4

REPORT INFORMATION
  Report Type: Spontaneous
  Country: DE (occurrence: None)
  Receive Date: 20141128
  Receipt Date: 20141128
  Transmission Date: 20150529
  Serious: Yes (Death, Congenital Anomaly)
  Sender: FDA-Public Use
  Company Number: DE-2014VAL000571

PATIENT
  Age: 1 Day
  Sex: Male
  Weight: 2.3 kg

DRUGS (8)
  1. PARTUSISTEN (FENOTEROL HYDROBROMIDE) [Concomitant]
  2. METOPROLOL TARTRATE. [Suspect]
     Active Substance: METOPROLOL TARTRATE
     Indication: RENAL HYPERTENSION
     Dosage: 142.5 MG, QD (95-0-47.5) [SINCE 2012. PROBABLY ONGOING OR CHANGED TO BELOC ZOK MITE]
     Route: 064
     Dates: start: 20130702, end: 20131217
  3. AMPICILLIN [Concomitant]
     Active Substance: AMPICILLIN
  4. METHYLDOPA (METHYLDOPA) [Suspect]
     Active Substance: METHYLDOPA
     Indication: RENAL HYPERTENSION
     Dosage: 500 MG, QD [SINCE 2010]
     Route: 064
     Dates: start: 20130702, end: 20140114
  5. PROGRAF [Suspect]
     Active Substance: TACROLIMUS\TACROLIMUS ANHYDROUS
     Indication: PROPHYLAXIS AGAINST TRANSPLANT REJECTION
     Dosage: 5.5 MG, QD (3-0-2.5) [SINCE 2007]
     Route: 064
     Dates: start: 20130702, end: 20140114
  6. ADALAT (NIFEDIPINE) [Concomitant]
  7. AZATHIOPRINE (AZATHIOPRINE) [Suspect]
     Active Substance: AZATHIOPRINE
     Indication: PROPHYLAXIS AGAINST TRANSPLANT REJECTION
     Dosage: 100 MG, QD [SINCE 2012. DOSAGE WAS INCREASED DURING PREGNANCY FROM 50 TO 100 MG/D]
     Route: 064
     Dates: start: 20130702, end: 20140114
  8. L-THYROXIN HENNING (LEVOTHYROXINE SODIUM) [Concomitant]

REACTIONS (10)
  - Death neonatal [None]
  - Respiratory failure [None]
  - Maternal drugs affecting foetus [None]
  - Polyhydramnios [None]
  - Foetal exposure during pregnancy [None]
  - Neonatal respiratory failure [None]
  - Premature baby [None]
  - Congenital cystic lung [None]
  - Apgar score low [None]
  - Hydrops foetalis [None]

NARRATIVE: CASE EVENT DATE: 20140114
